FAERS Safety Report 6913533-0 (Version None)
Quarter: 2010Q3

REPORT INFORMATION
  Report Type: 
  Country: None (occurrence: None)
  Receive Date: 20100803
  Receipt Date: 20100720
  Transmission Date: 20110219
  Serious: Yes (Other)
  Sender: FDA-Public Use
  Company Number: ENT 2010-0130

PATIENT
  Age: 68 Year
  Sex: Female

DRUGS (9)
  1. ENTACAPONE [Suspect]
     Indication: PARKINSON'S DISEASE
  2. CARBIDOPA AND LEVODOPA [Suspect]
     Indication: PARKINSON'S DISEASE
     Dosage: 1250 MG/D
  3. PRAMIPEXOLE DIHYDROCHLORIDE [Suspect]
     Indication: PARKINSON'S DISEASE
     Dosage: 3 MG/D
  4. MIRTAZAPINE [Suspect]
     Dosage: 30 MG/D
  5. ROPINIROLE [Suspect]
     Indication: PARKINSON'S DISEASE
  6. VENLAFAXINE [Suspect]
  7. RASAGILINE [Suspect]
     Indication: PARKINSON'S DISEASE
  8. CABERGOLINE [Suspect]
     Indication: PARKINSON'S DISEASE
     Dosage: 2 MG/D
  9. LEVODOPA (LEVODOPA) [Suspect]
     Indication: PARKINSON'S DISEASE

REACTIONS (8)
  - AGITATION [None]
  - COMPULSIVE SHOPPING [None]
  - DEPRESSION [None]
  - DRUG INEFFECTIVE [None]
  - FEELING GUILTY [None]
  - KLEPTOMANIA [None]
  - QUALITY OF LIFE DECREASED [None]
  - SHOPLIFTING [None]
